FAERS Safety Report 16152191 (Version 3)
Quarter: 2019Q2

REPORT INFORMATION
  Report Type: Spontaneous
  Country: GB (occurrence: GB)
  Receive Date: 20190403
  Receipt Date: 20190523
  Transmission Date: 20190711
  Serious: Yes (Other)
  Sender: FDA-Public Use
  Company Number: GB-ALK-ABELLO A/S-2019AA001266

PATIENT

DRUGS (6)
  1. IRBESARTAN. [Concomitant]
     Active Substance: IRBESARTAN
  2. ALLOPURINOL. [Concomitant]
     Active Substance: ALLOPURINOL
  3. RIVAROXABAN [Concomitant]
     Active Substance: RIVAROXABAN
  4. VENTOLIN [Concomitant]
     Active Substance: ALBUTEROL SULFATE
  5. BEE VENOM [Suspect]
     Active Substance: APIS MELLIFERA VENOM
     Indication: IMMUNE TOLERANCE INDUCTION
     Dosage: UNK
     Dates: start: 201803
  6. BEE VENOM [Suspect]
     Active Substance: APIS MELLIFERA VENOM
     Dosage: 100 MICROGRAM
     Dates: start: 201803

REACTIONS (3)
  - Anaphylactic reaction [Recovered/Resolved]
  - Nasal congestion [Not Recovered/Not Resolved]
  - Respiratory tract infection viral [Unknown]

NARRATIVE: CASE EVENT DATE: 20190318
